FAERS Safety Report 16053367 (Version 1)
Quarter: 2019Q1

REPORT INFORMATION
  Report Type: Spontaneous
  Country: US (occurrence: US)
  Receive Date: 20190308
  Receipt Date: 20190308
  Transmission Date: 20190418
  Serious: No
  Sender: FDA-Public Use
  Company Number: US-AKRON, INC.-2063754

PATIENT
  Sex: Female

DRUGS (1)
  1. CYCLOPENTOLATE. [Suspect]
     Active Substance: CYCLOPENTOLATE
     Route: 047

REACTIONS (1)
  - Mydriasis [Recovered/Resolved]
